FAERS Safety Report 8450778-5 (Version None)
Quarter: 2012Q2

REPORT INFORMATION
  Report Type: 
  Country: None (occurrence: None)
  Receive Date: 20120620
  Receipt Date: 20120612
  Transmission Date: 20120825
  Serious: Yes (Hospitalization)
  Sender: FDA-Public Use
  Company Number: US-INCYTE CORPORATION-2012IN000887

PATIENT
  Sex: Male
  Weight: 90.703 kg

DRUGS (11)
  1. DIRIVCAN [Concomitant]
     Dosage: 100 MG, QD X 7 DAYS
  2. FUROSEMIDE [Concomitant]
     Dosage: UNK, QD
  3. ALLOPURINOL [Concomitant]
     Dosage: 300 MG, QD
  4. PREDNISONE TAB [Concomitant]
     Dosage: 10 MG, TID
  5. FOLIC ACID [Concomitant]
     Dosage: 1 MG, QD
  6. JAKAFI [Suspect]
     Indication: MYELOFIBROSIS
     Dosage: 5 MG, BID
     Route: 048
     Dates: start: 20120228
  7. ACYCLOVIR [Concomitant]
     Dosage: 400 MG, BID
  8. ANDROXYL [Concomitant]
     Dosage: 10 MG, BID
  9. ACETAMINOPHEN [Concomitant]
     Dosage: UNK, PRN
  10. OMNICEF [Concomitant]
     Dosage: 300 MG, BID X 10 DAYS
  11. DULCOLAX [Concomitant]
     Dosage: UNK, QD

REACTIONS (1)
  - PYREXIA [None]
